FAERS Safety Report 19757364 (Version 1)
Quarter: 2021Q3

REPORT INFORMATION
  Report Type: Spontaneous
  Country: ES (occurrence: GB)
  Receive Date: 20210827
  Receipt Date: 20210827
  Transmission Date: 20211014
  Serious: Yes (Hospitalization, Other)
  Sender: FDA-Public Use
  Company Number: GB-BRECKENRIDGE PHARMACEUTICAL, INC.-2115758

PATIENT
  Age: 68 Year
  Sex: Female
  Weight: 92 kg

DRUGS (15)
  1. LEVOTHYROXINE. [Concomitant]
     Active Substance: LEVOTHYROXINE
  2. AMINOPHYLLINE. [Suspect]
     Active Substance: AMINOPHYLLINE
  3. ORUVAIL EXTENDED RELEASE [Concomitant]
     Active Substance: KETOPROFEN
  4. CIPROFLOXACIN. [Suspect]
     Active Substance: CIPROFLOXACIN
  5. VENSIR XL PROLONGED RELEASE?(VENLAFAXINE HYDROCHLORIDE) [Suspect]
     Active Substance: VENLAFAXINE HYDROCHLORIDE
  6. METHOTREXATE. [Suspect]
     Active Substance: METHOTREXATE
  7. CARBOCISTEINE [Suspect]
     Active Substance: CARBOCYSTEINE
  8. CABERGOLINE. [Concomitant]
     Active Substance: CABERGOLINE
  9. CETIRIZINE [Concomitant]
     Active Substance: CETIRIZINE HYDROCHLORIDE
  10. EZETIMIBE. [Concomitant]
     Active Substance: EZETIMIBE
  11. IRBESARTAN. [Concomitant]
     Active Substance: IRBESARTAN
  12. OMEPRAZOLE. [Suspect]
     Active Substance: OMEPRAZOLE
     Indication: GASTRIC DISORDER
  13. BENDROFLUMETHIAZIDE [Concomitant]
     Active Substance: BENDROFLUMETHIAZIDE
  14. ENBREL [Suspect]
     Active Substance: ETANERCEPT
  15. FOLIC ACID. [Concomitant]
     Active Substance: FOLIC ACID

REACTIONS (4)
  - Lower respiratory tract infection [Unknown]
  - Pulmonary pain [Unknown]
  - Product dose omission issue [Unknown]
  - Knee arthroplasty [Unknown]
